FAERS Safety Report 5934264-X (Version None)
Quarter: 2008Q4

REPORT INFORMATION
  Report Type: 
  Country: None (occurrence: None)
  Receive Date: 20081029
  Receipt Date: 20081021
  Transmission Date: 20090506
  Serious: Yes (Hospitalization)
  Sender: FDA-Public Use
  Company Number: US-CELGENEUS-163-20785-08101421

PATIENT
  Sex: Male

DRUGS (7)
  1. THALOMID [Suspect]
     Route: 048
     Dates: start: 20080724, end: 20080101
  2. THALOMID [Suspect]
     Route: 048
     Dates: start: 20081001
  3. ZOLADEX [Concomitant]
     Indication: DRUG USE FOR UNKNOWN INDICATION
  4. NEXIUM [Concomitant]
     Indication: DRUG USE FOR UNKNOWN INDICATION
  5. VICODIN [Concomitant]
     Indication: DRUG USE FOR UNKNOWN INDICATION
  6. XANAX [Concomitant]
     Indication: DRUG USE FOR UNKNOWN INDICATION
  7. FENERGAN [Concomitant]
     Indication: DRUG USE FOR UNKNOWN INDICATION

REACTIONS (1)
  - PROSTATIC SPECIFIC ANTIGEN INCREASED [None]
